FAERS Safety Report 8325122-4 (Version None)
Quarter: 2012Q2

REPORT INFORMATION
  Report Type: 
  Country: None (occurrence: None)
  Receive Date: 20120501
  Receipt Date: 20120213
  Transmission Date: 20120825
  Serious: No
  Sender: FDA-Public Use
  Company Number: US-ABBOTT-12P-163-0904841-00

PATIENT

DRUGS (1)
  1. CREON [Suspect]
     Indication: PANCREATITIS CHRONIC

REACTIONS (2)
  - ERYTHEMA [None]
  - PRURITUS [None]
